FAERS Safety Report 9270407 (Version 16)
Quarter: 2015Q2

REPORT INFORMATION
  Report Type: Report from Study
  Country: IE (occurrence: IE)
  Receive Date: 20130503
  Receipt Date: 20150511
  Transmission Date: 20150821
  Serious: Yes (Other)
  Sender: FDA-Public Use
  Company Number: IE-BAYER-2013-052800

PATIENT
  Age: 46 Year
  Sex: Female

DRUGS (1)
  1. NEXAVAR [Suspect]
     Active Substance: SORAFENIB
     Indication: MEDULLARY THYROID CANCER
     Dosage: 400 MG, BID
     Route: 048
     Dates: start: 20100414

REACTIONS (9)
  - Abdominal distension [Recovered/Resolved]
  - Metastatic neoplasm [None]
  - Arthralgia [None]
  - Anaemia [None]
  - Menorrhagia [Not Recovered/Not Resolved]
  - Uterine leiomyoma [None]
  - Haemoglobin decreased [None]
  - Product use issue [None]
  - Metrorrhagia [Recovered/Resolved]

NARRATIVE: CASE EVENT DATE: 20100414
